FAERS Safety Report 10552043 (Version 1)
Quarter: 2014Q4

REPORT INFORMATION
  Report Type: Spontaneous
  Country: US (occurrence: None)
  Receive Date: 20141027
  Receipt Date: 20141027
  Transmission Date: 20150529
  Serious: Yes (Other)
  Sender: FDA-Public Use
  Company Number: ADE14-043

PATIENT
  Age: 70 Year
  Sex: Male
  Weight: 104 kg

DRUGS (2)
  1. ISOFLURANE. [Concomitant]
     Active Substance: ISOFLURANE
  2. HEPARIN SODIUM. [Suspect]
     Active Substance: HEPARIN SODIUM
     Indication: CORONARY ARTERY BYPASS
     Dosage: 35,000 U TOTAL DOSE
     Route: 042
     Dates: start: 20141017, end: 20141017

REACTIONS (2)
  - Drug effect decreased [None]
  - Product quality issue [None]

NARRATIVE: CASE EVENT DATE: 20141017
